FAERS Safety Report 9851804 (Version 2)
Quarter: 2014Q1

REPORT INFORMATION
  Report Type: Spontaneous
  Country: IT (occurrence: IT)
  Receive Date: 20140129
  Receipt Date: 20140211
  Transmission Date: 20141002
  Serious: Yes (Hospitalization)
  Sender: FDA-Public Use
  Company Number: IT-RANBAXY-2014RR-77628

PATIENT
  Age: 36 Year
  Sex: Male

DRUGS (6)
  1. PARACETAMOL [Suspect]
     Indication: SUICIDE ATTEMPT
     Dosage: 300 MG COMPLETE
     Route: 048
     Dates: start: 20130913, end: 20130913
  2. SERENASE [Suspect]
     Indication: SUICIDE ATTEMPT
     Dosage: 15 ML COMPLETE
     Route: 048
     Dates: start: 20130913, end: 20130913
  3. DEPAKIN CHRONO [Suspect]
     Indication: SUICIDE ATTEMPT
     Dosage: 8 DF COMPLETE
     Route: 048
     Dates: start: 20130913, end: 20130913
  4. SERACTIL [Suspect]
     Indication: SUICIDE ATTEMPT
     Dosage: 10 DF COMPLETE
     Route: 048
     Dates: start: 20130913, end: 20130913
  5. SPIDIDOL [Suspect]
     Indication: SUICIDE ATTEMPT
     Dosage: 6 DF COMPLETE
     Route: 048
     Dates: start: 20130913, end: 20130913
  6. OKI [Suspect]
     Indication: SUICIDE ATTEMPT
     Dosage: 6 DF COMPLETE
     Route: 048
     Dates: start: 20130913, end: 20130913

REACTIONS (2)
  - Intentional overdose [Recovered/Resolved]
  - Somnolence [Recovered/Resolved]
